FAERS Safety Report 9096856 (Version 1)
Quarter: 2013Q1

REPORT INFORMATION
  Report Type: Spontaneous
  Country: US (occurrence: US)
  Receive Date: 20130211
  Receipt Date: 20130211
  Transmission Date: 20140127
  Serious: Yes (Other)
  Sender: FDA-Public Use
  Company Number: PHEH2013US003299

PATIENT
  Sex: Female
  Weight: 79.37 kg

DRUGS (1)
  1. GILENYA [Suspect]
     Indication: MULTIPLE SCLEROSIS
     Dosage: 1 DF, DAILY
     Route: 048
     Dates: start: 20120901

REACTIONS (3)
  - Blindness [Recovered/Resolved]
  - Eye disorder [Recovered/Resolved]
  - Vitreous floaters [Recovered/Resolved]
